FAERS Safety Report 8173887-7 (Version None)
Quarter: 2012Q1

REPORT INFORMATION
  Report Type: 
  Country: None (occurrence: None)
  Receive Date: 20120229
  Receipt Date: 20120216
  Transmission Date: 20120608
  Serious: Yes (Other)
  Sender: FDA-Public Use
  Company Number: US-ELI_LILLY_AND_COMPANY-US201202005734

PATIENT
  Age: 89 Year
  Sex: Male

DRUGS (2)
  1. CYMBALTA [Suspect]
     Indication: ANXIETY
     Dosage: 30 MG, QD
  2. ATIVAN [Concomitant]

REACTIONS (9)
  - VISUAL ACUITY REDUCED [None]
  - NERVOUSNESS [None]
  - BLOOD PRESSURE INCREASED [None]
  - INTENTIONAL DRUG MISUSE [None]
  - MACULAR DEGENERATION [None]
  - DIZZINESS [None]
  - SOMNOLENCE [None]
  - GLAUCOMA [None]
  - CONFUSIONAL STATE [None]
